FAERS Safety Report 11573123 (Version 3)
Quarter: 2015Q4

REPORT INFORMATION
  Report Type: Spontaneous
  Country: US (occurrence: US)
  Receive Date: 20150916
  Receipt Date: 20151104
  Transmission Date: 20160304
  Serious: No
  Sender: FDA-Public Use
  Company Number: US-ELI_LILLY_AND_COMPANY-US200910006499

PATIENT
  Age: 78 Year
  Sex: Female

DRUGS (2)
  1. FORTEO [Suspect]
     Active Substance: TERIPARATIDE
     Dosage: 20 UG, QD
  2. FORTEO [Suspect]
     Active Substance: TERIPARATIDE
     Indication: OSTEOPOROSIS
     Dosage: 20 UG, QD
     Dates: start: 200908

REACTIONS (8)
  - Abdominal discomfort [Unknown]
  - Muscle spasms [Not Recovered/Not Resolved]
  - Bone pain [Unknown]
  - Muscle spasms [Unknown]
  - Headache [Unknown]
  - Diarrhoea [Unknown]
  - Myalgia [Recovering/Resolving]
  - Nausea [Not Recovered/Not Resolved]

NARRATIVE: CASE EVENT DATE: 200908
